FAERS Safety Report 5851165-6 (Version None)
Quarter: 2008Q3

REPORT INFORMATION
  Report Type: 
  Country: None (occurrence: None)
  Receive Date: 20080820
  Receipt Date: 20080805
  Transmission Date: 20090109
  Serious: Yes (Other)
  Sender: FDA-Public Use
  Company Number: US-BAYER-200813434BCC

PATIENT
  Age: 66 Year
  Sex: Male
  Weight: 80 kg

DRUGS (13)
  1. PHILLIPS MILK OF MAGNESIA WILD CHERRY [Suspect]
     Indication: CONSTIPATION
     Route: 048
     Dates: start: 20080730, end: 20080802
  2. ALKA-SELTZER TABLETS [Suspect]
     Indication: STOMACH DISCOMFORT
     Route: 048
  3. ALKA-SELTZER TABLETS [Suspect]
     Route: 048
     Dates: start: 20080804
  4. PHILLIPS MILK OF MAGNESIA WILD CHERRY [Suspect]
     Dates: start: 20080804
  5. DULCOLAX [Concomitant]
     Route: 048
     Dates: start: 20080804
  6. DULCOLAX [Concomitant]
     Route: 048
     Dates: start: 20080805
  7. VALIUM [Concomitant]
  8. CARDIZEM [Concomitant]
     Dosage: TOTAL DAILY DOSE: 360 MG
  9. WARFARIN SODIUM [Concomitant]
  10. CYPROHEPTADINE HCL [Concomitant]
  11. DOXEPIN HCL [Concomitant]
     Dosage: TOTAL DAILY DOSE: 150 MG
  12. NEURONTIN [Concomitant]
  13. METAMUCIL [Concomitant]

REACTIONS (3)
  - CONSTIPATION [None]
  - FAECALOMA [None]
  - FAECES HARD [None]
